FAERS Safety Report 19020819 (Version 1)
Quarter: 2021Q1

REPORT INFORMATION
  Report Type: Spontaneous
  Country: US (occurrence: US)
  Receive Date: 20210317
  Receipt Date: 20210317
  Transmission Date: 20210420
  Serious: Yes (Other)
  Sender: FDA-Public Use
  Company Number: US-SA-2021SA088828

PATIENT
  Age: 55 Year
  Sex: Male

DRUGS (2)
  1. ZANTAC [Suspect]
     Active Substance: RANITIDINE HYDROCHLORIDE
     Indication: DYSPEPSIA
     Dosage: 150 MG, QD
     Dates: start: 201301, end: 201912
  2. ZANTAC [Suspect]
     Active Substance: RANITIDINE HYDROCHLORIDE
     Indication: ABDOMINAL DISCOMFORT

REACTIONS (7)
  - Bladder cancer [Unknown]
  - Injury [Unknown]
  - Gastric cancer [Unknown]
  - Lung neoplasm malignant [Unknown]
  - Brain neoplasm [Unknown]
  - Malignant neoplasm of thorax [Unknown]
  - Injury [Unknown]

NARRATIVE: CASE EVENT DATE: 20130101
